FAERS Safety Report 4307585-4 (Version None)
Quarter: 2004Q1

REPORT INFORMATION
  Report Type: 
  Country: None (occurrence: None)
  Receive Date: 20040226
  Receipt Date: 20040213
  Transmission Date: 20041129
  Serious: Yes (Life-Threatening, Hospitalization)
  Sender: FDA-Public Use
  Company Number: 2004-DE-00739GD

PATIENT
  Age: 53 Year
  Sex: Female

DRUGS (3)
  1. CYCLOPHOSPHAMIDE [Suspect]
     Indication: LUPUS NEPHRITIS
     Dosage: 500 MG (NR, ONCE), IV
     Route: 042
  2. MESNA [Concomitant]
  3. DOMPERIDONE [Concomitant]

REACTIONS (11)
  - BLOOD OSMOLARITY DECREASED [None]
  - BLOOD PRESSURE INCREASED [None]
  - BLOOD SODIUM DECREASED [None]
  - BLOOD URINE [None]
  - CIRCULATORY COLLAPSE [None]
  - DIARRHOEA [None]
  - GRAND MAL CONVULSION [None]
  - PROTEIN URINE PRESENT [None]
  - URINE OSMOLARITY DECREASED [None]
  - VOMITING [None]
  - WATER INTOXICATION [None]
